FAERS Safety Report 5318793-8 (Version None)
Quarter: 2007Q2

REPORT INFORMATION
  Report Type: 
  Country: None (occurrence: None)
  Receive Date: 20070503
  Receipt Date: 20070419
  Transmission Date: 20071010
  Serious: Yes (Hospitalization)
  Sender: FDA-Public Use
  Company Number: 07-000922

PATIENT
  Age: 41 Year
  Sex: Female

DRUGS (3)
  1. DURICEF [Suspect]
     Indication: TONSILLITIS
     Dosage: 1 G, BID, ORAL
     Route: 048
     Dates: start: 19960807, end: 19960809
  2. CLARADOL /00020001 (PARACETAMOL) 1G [Suspect]
     Dosage: 1 G, TID, ORAL
     Route: 048
     Dates: start: 19960807, end: 19960809
  3. RIBATRAN (CHYMOTRYPSIN, RIBONUCLEASE, TRYPSIN) [Suspect]
     Dosage: 1 DOSE, TID, ORAL
     Route: 048
     Dates: start: 19960807, end: 19960809

REACTIONS (3)
  - CYTOLYTIC HEPATITIS [None]
  - EOSINOPHILIA [None]
  - STEVENS-JOHNSON SYNDROME [None]
